FAERS Safety Report 15852770 (Version 1)
Quarter: 2019Q1

REPORT INFORMATION
  Report Type: Spontaneous
  Country: US (occurrence: US)
  Receive Date: 20190122
  Receipt Date: 20190122
  Transmission Date: 20190417
  Serious: No
  Sender: FDA-Public Use
  Company Number: US-PERRIGO-18US007779

PATIENT
  Age: 74 Year
  Sex: Male
  Weight: 102.4 kg

DRUGS (3)
  1. ASPIRIN                            /00002701/ [Concomitant]
     Active Substance: ASPIRIN
     Indication: SUPPLEMENTATION THERAPY
     Dosage: UNK
     Route: 048
  2. PERMETHRIN. [Suspect]
     Active Substance: PERMETHRIN
     Indication: LICE INFESTATION
     Dosage: 15 ML, PRN
     Route: 061
     Dates: start: 20180601, end: 201807
  3. ANTACIDS [Concomitant]
     Active Substance: UNSPECIFIED INGREDIENT
     Indication: GASTROOESOPHAGEAL REFLUX DISEASE
     Dosage: UNK
     Route: 048

REACTIONS (1)
  - Inappropriate schedule of product administration [Recovered/Resolved]

NARRATIVE: CASE EVENT DATE: 20180601
